FAERS Safety Report 9464580 (Version 2)
Quarter: 2013Q3

REPORT INFORMATION
  Report Type: Report from Study
  Country: DE (occurrence: DE)
  Receive Date: 20130819
  Receipt Date: 20130819
  Transmission Date: 20140515
  Serious: Yes (Hospitalization, Other)
  Sender: FDA-Public Use
  Company Number: DE-TEVA-417534GER

PATIENT
  Age: 32 Year
  Sex: Female

DRUGS (1)
  1. COPAXONE [Suspect]
     Indication: MULTIPLE SCLEROSIS
     Dates: start: 20100106

REACTIONS (3)
  - Retinal haemorrhage [Not Recovered/Not Resolved]
  - Eye injury [Not Recovered/Not Resolved]
  - Road traffic accident [Recovered/Resolved]
